FAERS Safety Report 5002350-7 (Version None)
Quarter: 2006Q2

REPORT INFORMATION
  Report Type: 
  Country: None (occurrence: None)
  Receive Date: 20060512
  Receipt Date: 20060502
  Transmission Date: 20061013
  Serious: Yes (Other)
  Sender: FDA-Public Use
  Company Number: 200604772

PATIENT
  Age: 67 Year
  Sex: Female

DRUGS (2)
  1. TIMOLOL MALEATE [Suspect]
     Indication: GLAUCOMA
  2. LATANOPROST [Concomitant]

REACTIONS (2)
  - DEAFNESS UNILATERAL [None]
  - DIZZINESS [None]
